FAERS Safety Report 18489547 (Version 2)
Quarter: 2020Q4

REPORT INFORMATION
  Report Type: Spontaneous
  Country: DK (occurrence: DK)
  Receive Date: 20201111
  Receipt Date: 20201126
  Transmission Date: 20210114
  Serious: Yes (Other)
  Sender: FDA-Public Use
  Company Number: DK-STRIDES ARCOLAB LIMITED-2020SP013597

PATIENT
  Age: 10 Year
  Sex: Male

DRUGS (9)
  1. OMALIZUMAB. [Suspect]
     Active Substance: OMALIZUMAB
     Indication: HYPEREOSINOPHILIC SYNDROME
     Dosage: UNK
     Route: 065
  2. PREDNISOLONE. [Suspect]
     Active Substance: PREDNISOLONE
     Indication: HYPEREOSINOPHILIC SYNDROME
     Dosage: 25MG PER DAY (0.9 MG/KG BODYWEIGHT)
     Route: 048
  3. RITUXIMAB. [Suspect]
     Active Substance: RITUXIMAB
     Indication: HYPEREOSINOPHILIC SYNDROME
     Dosage: UNK
     Route: 065
  4. HYDROXYUREA. [Suspect]
     Active Substance: HYDROXYUREA
     Indication: HYPEREOSINOPHILIC SYNDROME
     Dosage: UNK
     Route: 065
  5. AZATHIOPRINE. [Suspect]
     Active Substance: AZATHIOPRINE
     Indication: HYPEREOSINOPHILIC SYNDROME
     Dosage: UNK
     Route: 065
  6. MEPOLIZUMAB [Suspect]
     Active Substance: MEPOLIZUMAB
     Indication: HYPEREOSINOPHILIC SYNDROME
     Dosage: UNK
     Route: 065
  7. CYCLOSPORINE. [Suspect]
     Active Substance: CYCLOSPORINE
     Indication: HYPEREOSINOPHILIC SYNDROME
     Dosage: UNK
     Route: 065
  8. METHOTREXATE. [Suspect]
     Active Substance: METHOTREXATE
     Indication: HYPEREOSINOPHILIC SYNDROME
     Dosage: UNK
     Route: 065
  9. PREDNISOLONE. [Suspect]
     Active Substance: PREDNISOLONE
     Dosage: 5 MILLIGRAM (GRADUALLY REDUCED TO 5MG)
     Route: 048

REACTIONS (4)
  - Off label use [Unknown]
  - Delayed puberty [Recovered/Resolved]
  - Drug ineffective [Unknown]
  - Growth retardation [Recovered/Resolved]
